FAERS Safety Report 15059602 (Version 1)
Quarter: 2018Q2

REPORT INFORMATION
  Report Type: Spontaneous
  Country: US (occurrence: US)
  Receive Date: 20180625
  Receipt Date: 20180625
  Transmission Date: 20180711
  Serious: No
  Sender: FDA-Public Use
  Company Number: US-SA-2018SA145774

PATIENT
  Age: 75 Year
  Sex: Female

DRUGS (1)
  1. LANTUS SOLOSTAR [Suspect]
     Active Substance: INSULIN GLARGINE
     Indication: TYPE 2 DIABETES MELLITUS
     Dosage: 25 U, BID
     Route: 058
     Dates: start: 2003

REACTIONS (4)
  - Cardiac disorder [Unknown]
  - Eye disorder [Unknown]
  - Wrong technique in device usage process [Unknown]
  - Product use issue [Unknown]
